FAERS Safety Report 6733585-0 (Version None)
Quarter: 2010Q2

REPORT INFORMATION
  Report Type: 
  Country: None (occurrence: None)
  Receive Date: 20100520
  Receipt Date: 20100510
  Transmission Date: 20101027
  Serious: No
  Sender: FDA-Public Use
  Company Number: US-B.I. PHARMACEUTICALS,INC./RIDGEFIELD-2010-BP-05311BP

PATIENT
  Sex: Female

DRUGS (3)
  1. SPIRIVA [Suspect]
     Dosage: 18 MCG
     Route: 055
     Dates: start: 20040101
  2. ASPIRIN [Concomitant]
     Indication: PROPHYLAXIS
  3. ALPRAZOLAM [Concomitant]
     Indication: ANXIETY

REACTIONS (2)
  - DIABETES MELLITUS [None]
  - DYSPNOEA [None]
